FAERS Safety Report 11965235 (Version 3)
Quarter: 2016Q1

REPORT INFORMATION
  Report Type: Report from Study
  Country: US (occurrence: US)
  Receive Date: 20160127
  Receipt Date: 20160211
  Transmission Date: 20160526
  Serious: No
  Sender: FDA-Public Use
  Company Number: PHEH2016US001716

PATIENT
  Sex: Female

DRUGS (1)
  1. ENTRESTO [Suspect]
     Active Substance: SACUBITRIL\VALSARTAN
     Indication: CARDIAC FAILURE CHRONIC
     Route: 065

REACTIONS (1)
  - Drug ineffective [Unknown]
